FAERS Safety Report 21811378 (Version 1)
Quarter: 2023Q1

REPORT INFORMATION
  Report Type: Spontaneous
  Country: BE (occurrence: BE)
  Receive Date: 20230103
  Receipt Date: 20230103
  Transmission Date: 20230418
  Serious: Yes (Hospitalization, Other)
  Sender: FDA-Public Use
  Company Number: None

PATIENT
  Age: 70 Year
  Sex: Male
  Weight: 79 kg

DRUGS (5)
  1. CIPROFLOXACIN [Interacting]
     Active Substance: CIPROFLOXACIN
     Indication: Cystitis noninfective
     Dosage: 2 X 1 PER DAY
     Route: 048
     Dates: start: 20221007, end: 20221008
  2. PHENPROCOUMON [Interacting]
     Active Substance: PHENPROCOUMON
  3. CLOPIDOGREL [Concomitant]
     Active Substance: CLOPIDOGREL BISULFATE
  4. COVERAM [Concomitant]
     Active Substance: AMLODIPINE\PERINDOPRIL
  5. PANTOPRAZOLE [Concomitant]
     Active Substance: PANTOPRAZOLE

REACTIONS (5)
  - Paraparesis [Recovering/Resolving]
  - Mobility decreased [Recovering/Resolving]
  - International normalised ratio abnormal [Recovering/Resolving]
  - Drug interaction [Recovering/Resolving]
  - Nervous system disorder [Recovering/Resolving]

NARRATIVE: CASE EVENT DATE: 20221008
